FAERS Safety Report 13483396 (Version 3)
Quarter: 2017Q2

REPORT INFORMATION
  Report Type: Spontaneous
  Country: US (occurrence: US)
  Receive Date: 20170426
  Receipt Date: 20170531
  Transmission Date: 20170830
  Serious: Yes (Hospitalization, Other)
  Sender: FDA-Public Use
  Company Number: US-BTG INTERNATIONAL LTD-BTG01230

PATIENT
  Age: 16 Month
  Sex: Male

DRUGS (11)
  1. CROFAB [Suspect]
     Active Substance: CROTALIDAE POLYVALENT IMMUNE FAB (OVINE)
     Dosage: 2 DF, UNK
  2. VIPER ANTIVENOM [Suspect]
     Active Substance: PIT VIPER (CROTALINAE) IMMUNE GLOBULIN ANTIVENIN (EQUINE)
     Dosage: 5 DF, UNK
  3. CROFAB [Suspect]
     Active Substance: CROTALIDAE POLYVALENT IMMUNE FAB (OVINE)
     Indication: SNAKE BITE
     Dosage: 4 DF, UNK
     Dates: start: 20150910
  4. VIPER ANTIVENOM [Suspect]
     Active Substance: PIT VIPER (CROTALINAE) IMMUNE GLOBULIN ANTIVENIN (EQUINE)
     Indication: SNAKE BITE
     Dosage: 5 DF, UNK
  5. MORPHINE [Concomitant]
     Active Substance: MORPHINE
     Indication: PAIN
  6. CLINDAMYCIN. [Concomitant]
     Active Substance: CLINDAMYCIN
     Indication: CELLULITIS
  7. CROFAB [Suspect]
     Active Substance: CROTALIDAE POLYVALENT IMMUNE FAB (OVINE)
     Dosage: 4 DF, UNK
  8. CROFAB [Suspect]
     Active Substance: CROTALIDAE POLYVALENT IMMUNE FAB (OVINE)
     Dosage: 4 DF, UNK
  9. CROFAB [Suspect]
     Active Substance: CROTALIDAE POLYVALENT IMMUNE FAB (OVINE)
     Dosage: 2 DF, UNK
  10. CROFAB [Suspect]
     Active Substance: CROTALIDAE POLYVALENT IMMUNE FAB (OVINE)
     Dosage: 2 DF, UNK
     Dates: end: 20150912
  11. MUPIROCIN. [Concomitant]
     Active Substance: MUPIROCIN
     Indication: CELLULITIS

REACTIONS (6)
  - Vomiting [Unknown]
  - Drug ineffective [Unknown]
  - Skin discolouration [Recovered/Resolved]
  - Condition aggravated [Recovered/Resolved]
  - Urticaria [Recovered/Resolved]
  - Pruritus [Recovered/Resolved]

NARRATIVE: CASE EVENT DATE: 20150910
